FAERS Safety Report 6135340-1 (Version None)
Quarter: 2009Q1

REPORT INFORMATION
  Report Type: 
  Country: None (occurrence: None)
  Receive Date: 20090327
  Receipt Date: 20090220
  Transmission Date: 20090719
  Serious: Yes (Other)
  Sender: FDA-Public Use
  Company Number: US-BRISTOL-MYERS SQUIBB COMPANY-14520696

PATIENT
  Age: 79 Year
  Sex: Female

DRUGS (1)
  1. DASATINIB [Suspect]

REACTIONS (1)
  - DRUG INEFFECTIVE [None]
